FAERS Safety Report 14366240 (Version 5)
Quarter: 2018Q2

REPORT INFORMATION
  Report Type: Spontaneous
  Country: DE (occurrence: DE)
  Receive Date: 20180109
  Receipt Date: 20180629
  Transmission Date: 20180711
  Serious: Yes (Hospitalization, Other)
  Sender: FDA-Public Use
  Company Number: DE-WEST-WARD PHARMACEUTICALS CORP.-DE-H14001-18-00073

PATIENT
  Age: 3 Year
  Sex: Male
  Weight: 18.5 kg

DRUGS (26)
  1. VEPESID [Suspect]
     Active Substance: ETOPOSIDE
     Route: 065
     Dates: start: 201707, end: 201707
  2. VINCRISTINE [Suspect]
     Active Substance: VINCRISTINE
     Route: 065
     Dates: start: 20170213
  3. ADRIAMYCIN [Suspect]
     Active Substance: DOXORUBICIN HYDROCHLORIDE
     Route: 065
     Dates: start: 20170330
  4. HOLOXAN [Suspect]
     Active Substance: IFOSFAMIDE
     Route: 065
     Dates: start: 201707, end: 201707
  5. AMPHO MORONAL [Concomitant]
     Active Substance: AMPHOTERICIN B
     Indication: PRODUCT USED FOR UNKNOWN INDICATION
     Route: 065
     Dates: start: 201701
  6. LYSODREN [Suspect]
     Active Substance: MITOTANE
     Indication: ADRENOCORTICAL CARCINOMA
     Route: 065
     Dates: start: 20170315, end: 20170319
  7. LYSODREN [Suspect]
     Active Substance: MITOTANE
     Route: 065
     Dates: start: 20170118, end: 20170315
  8. VEPESID [Suspect]
     Active Substance: ETOPOSIDE
     Indication: ADRENOCORTICAL CARCINOMA
     Route: 065
     Dates: start: 20170213
  9. HOLOXAN [Suspect]
     Active Substance: IFOSFAMIDE
     Indication: CHEMOTHERAPY
     Route: 065
     Dates: start: 20170330
  10. CARBOPLATIN. [Suspect]
     Active Substance: CARBOPLATIN
     Route: 065
     Dates: start: 20170330, end: 201706
  11. LYSODREN [Suspect]
     Active Substance: MITOTANE
     Route: 065
     Dates: start: 20171030
  12. VINCRISTINE [Suspect]
     Active Substance: VINCRISTINE
     Route: 065
     Dates: start: 201707, end: 201707
  13. HOLOXAN [Suspect]
     Active Substance: IFOSFAMIDE
     Route: 065
     Dates: start: 20170213
  14. CARBOPLATIN. [Suspect]
     Active Substance: CARBOPLATIN
     Route: 065
     Dates: start: 201707, end: 201707
  15. LYSODREN [Suspect]
     Active Substance: MITOTANE
     Indication: METASTASES TO LUNG
     Route: 065
     Dates: start: 20170330, end: 2017
  16. LYSODREN [Suspect]
     Active Substance: MITOTANE
     Route: 065
     Dates: start: 20170714, end: 20171006
  17. ADRIAMYCIN [Suspect]
     Active Substance: DOXORUBICIN HYDROCHLORIDE
     Indication: CHEMOTHERAPY
     Route: 065
     Dates: start: 20170213
  18. HYDROCORTISONE. [Concomitant]
     Active Substance: HYDROCORTISONE
     Indication: PRODUCT USED FOR UNKNOWN INDICATION
     Route: 065
     Dates: start: 201701
  19. COTRIM [Concomitant]
     Active Substance: SULFAMETHOXAZOLE\TRIMETHOPRIM
     Indication: PRODUCT USED FOR UNKNOWN INDICATION
     Route: 065
     Dates: start: 201701
  20. CARBOPLATIN. [Suspect]
     Active Substance: CARBOPLATIN
     Indication: METASTASES TO LUNG
     Route: 065
     Dates: start: 20170213
  21. LYSODREN [Suspect]
     Active Substance: MITOTANE
     Route: 065
     Dates: start: 20171010, end: 20171017
  22. LYSODREN [Suspect]
     Active Substance: MITOTANE
     Route: 065
     Dates: start: 2017
  23. VEPESID [Suspect]
     Active Substance: ETOPOSIDE
     Route: 065
     Dates: start: 20170330, end: 201706
  24. VINCRISTINE [Suspect]
     Active Substance: VINCRISTINE
     Indication: CHEMOTHERAPY
     Route: 065
     Dates: start: 20170330
  25. ADRIAMYCIN [Suspect]
     Active Substance: DOXORUBICIN HYDROCHLORIDE
     Route: 065
     Dates: start: 201707, end: 201707
  26. FLUDROCORTISONE [Concomitant]
     Active Substance: FLUDROCORTISONE
     Indication: PRODUCT USED FOR UNKNOWN INDICATION
     Route: 065
     Dates: start: 201701

REACTIONS (9)
  - Electrocardiogram QT prolonged [Recovered/Resolved]
  - Pyrexia [Recovered/Resolved]
  - Weight decreased [Recovered/Resolved]
  - Somnolence [Recovered/Resolved]
  - Asthenia [Recovered/Resolved]
  - Decreased appetite [Recovered/Resolved]
  - Sepsis [Recovered/Resolved]
  - Dehydration [Recovered/Resolved]
  - Fatigue [Recovered/Resolved]

NARRATIVE: CASE EVENT DATE: 2017
